FAERS Safety Report 17882557 (Version 6)
Quarter: 2022Q3

REPORT INFORMATION
  Report Type: Report from Study
  Country: AR (occurrence: AR)
  Receive Date: 20200610
  Receipt Date: 20220831
  Transmission Date: 20221027
  Serious: Yes (Hospitalization)
  Sender: FDA-Public Use
  Company Number: AR-ARRAY-2020-07460

PATIENT
  Age: 67 Year
  Sex: Female
  Weight: 64 kg

DRUGS (3)
  1. BINIMETINIB [Suspect]
     Active Substance: BINIMETINIB
     Indication: Colorectal cancer metastatic
     Dosage: 30 MG, TWICE DAILY
     Route: 048
     Dates: start: 20181106, end: 20200301
  2. ENCORAFENIB [Suspect]
     Active Substance: ENCORAFENIB
     Indication: Colorectal cancer metastatic
     Dosage: 300 MG, DAILY
     Route: 048
     Dates: start: 20181106, end: 20200301
  3. CETUXIMAB [Suspect]
     Active Substance: CETUXIMAB
     Indication: Colorectal cancer metastatic
     Dosage: 417.5 MG, ONCE WEEKLY
     Route: 042
     Dates: start: 20181106, end: 20200218

REACTIONS (3)
  - Renal failure [Recovered/Resolved with Sequelae]
  - Anaemia [Recovered/Resolved with Sequelae]
  - Large intestinal ulcer [Recovered/Resolved with Sequelae]

NARRATIVE: CASE EVENT DATE: 20200226
